FAERS Safety Report 5071689-1 (Version None)
Quarter: 2006Q3

REPORT INFORMATION
  Report Type: 
  Country: None (occurrence: None)
  Receive Date: 20060801
  Receipt Date: 20060717
  Transmission Date: 20061208
  Serious: Yes (Death, Hospitalization)
  Sender: FDA-Public Use
  Company Number: 2006070040

PATIENT
  Age: 55 Year
  Sex: Male
  Weight: 44.2 kg

DRUGS (3)
  1. D-PENICILLAMINE [Suspect]
     Indication: SYSTEMIC SCLEROSIS
     Dates: start: 19910701
  2. BERAPROST (BERAPROST) [Concomitant]
  3. PREDNISOLONE [Concomitant]

REACTIONS (18)
  - BLOOD PH INCREASED [None]
  - CACHEXIA [None]
  - CARDIOPULMONARY FAILURE [None]
  - HEART RATE INCREASED [None]
  - LUNG ADENOCARCINOMA [None]
  - LYMPHADENOPATHY MEDIASTINAL [None]
  - METASTASES TO ADRENALS [None]
  - METASTASES TO HEART [None]
  - METASTASES TO LUNG [None]
  - METASTASES TO LYMPH NODES [None]
  - METASTASES TO TRACHEA [None]
  - PERICARDIAL EFFUSION [None]
  - PLEURAL EFFUSION [None]
  - PULMONARY FIBROSIS [None]
  - RESPIRATORY FAILURE [None]
  - RESPIRATORY RATE INCREASED [None]
  - TUMOUR INVASION [None]
  - VENOUS INSUFFICIENCY [None]
